FAERS Safety Report 16542672 (Version 2)
Quarter: 2019Q3

REPORT INFORMATION
  Report Type: Report from Study
  Country: DE (occurrence: DE)
  Receive Date: 20190709
  Receipt Date: 20190725
  Transmission Date: 20191004
  Serious: Yes (Other)
  Sender: FDA-Public Use
  Company Number: DE-BRISTOL-MYERS SQUIBB COMPANY-BMS-2019-065509

PATIENT
  Age: 23 Year
  Sex: Female

DRUGS (1)
  1. IPILIMUMAB [Suspect]
     Active Substance: IPILIMUMAB
     Indication: METASTATIC MALIGNANT MELANOMA
     Dosage: UNK
     Route: 065

REACTIONS (6)
  - Diabetes mellitus [Unknown]
  - Premature delivery [Unknown]
  - Hyperglycaemia [Unknown]
  - Maternal exposure timing unspecified [Recovered/Resolved]
  - Shock [Unknown]
  - Hypophysitis [Unknown]

NARRATIVE: CASE EVENT DATE: 201603
